FAERS Safety Report 18473670 (Version 1)
Quarter: 2020Q4

REPORT INFORMATION
  Report Type: Spontaneous
  Country: ES (occurrence: ES)
  Receive Date: 20201106
  Receipt Date: 20201106
  Transmission Date: 20210114
  Serious: Yes (Hospitalization)
  Sender: FDA-Public Use
  Company Number: ES-PFIZER INC-2020430542

PATIENT
  Age: 67 Year
  Sex: Male

DRUGS (7)
  1. ACETYLSALICYLIC ACID [Concomitant]
     Active Substance: ASPIRIN
  2. TRESIBA [Concomitant]
     Active Substance: INSULIN DEGLUDEC
  3. ESOMEPRAZOLE. [Concomitant]
     Active Substance: ESOMEPRAZOLE MAGNESIUM
  4. APIDRA [Concomitant]
     Active Substance: INSULIN GLULISINE
  5. CELECOXIB. [Suspect]
     Active Substance: CELECOXIB
     Indication: ARTHRALGIA
     Dosage: 200 MG, 1X/DAY (EVERY 24H)
     Route: 048
     Dates: start: 20191210, end: 20200424
  6. HEIPRAM [Concomitant]
     Active Substance: ESCITALOPRAM OXALATE
  7. ENALAPRIL [Concomitant]
     Active Substance: ENALAPRIL

REACTIONS (4)
  - Proteinuria [Recovered/Resolved]
  - Vasculitis [Recovered/Resolved]
  - Acute kidney injury [Recovered/Resolved]
  - Haematuria [Recovered/Resolved]

NARRATIVE: CASE EVENT DATE: 20200424
